FAERS Safety Report 7911212-4 (Version None)
Quarter: 2011Q4

REPORT INFORMATION
  Report Type: 
  Country: None (occurrence: None)
  Receive Date: 20111114
  Receipt Date: 20111103
  Transmission Date: 20120403
  Serious: Yes (Other)
  Sender: FDA-Public Use
  Company Number: US-JNJFOC-20111102298

PATIENT
  Sex: Female

DRUGS (2)
  1. INVEGA [Suspect]
     Indication: BIPOLAR DISORDER
     Route: 048
     Dates: start: 20111001, end: 20111026
  2. PERCOCET [Concomitant]
     Indication: ARTHRITIS
     Dosage: AS NEEDED
     Route: 048

REACTIONS (1)
  - PANCREATIC DISORDER [None]
